FAERS Safety Report 12929912 (Version 1)
Quarter: 2016Q4

REPORT INFORMATION
  Report Type: Spontaneous
  Country: US (occurrence: US)
  Receive Date: 20161110
  Receipt Date: 20161110
  Transmission Date: 20170207
  Serious: Yes (Hospitalization)
  Sender: FDA-Public Use
  Company Number: None

PATIENT

DRUGS (1)
  1. REMICADE [Suspect]
     Active Substance: INFLIXIMAB
     Indication: CROHN^S DISEASE
     Dosage: ?          OTHER FREQUENCY:INDUCTION;?
     Route: 042
     Dates: start: 20161017, end: 20161017

REACTIONS (4)
  - Nausea [None]
  - Dyspnoea [None]
  - Orthopnoea [None]
  - Chest pain [None]

NARRATIVE: CASE EVENT DATE: 20161017
